FAERS Safety Report 6136778-9 (Version None)
Quarter: 2009Q1

REPORT INFORMATION
  Report Type: 
  Country: None (occurrence: None)
  Receive Date: 20090326
  Receipt Date: 20090326
  Transmission Date: 20090719
  Serious: Yes (Life-Threatening)
  Sender: FDA-Public Use
  Company Number: None

PATIENT
  Age: 51 Year
  Sex: Female
  Weight: 72.5755 kg

DRUGS (1)
  1. CHANTIX [Suspect]
     Dates: start: 20090117, end: 20090317

REACTIONS (11)
  - ABNORMAL DREAMS [None]
  - ALCOHOL USE [None]
  - CRYING [None]
  - DEPRESSION [None]
  - FEAR [None]
  - GASTRIC DISORDER [None]
  - HYPERPHAGIA [None]
  - NERVOUSNESS [None]
  - SLEEP TERROR [None]
  - THINKING ABNORMAL [None]
  - WEIGHT INCREASED [None]
